FAERS Safety Report 18570863 (Version 1)
Quarter: 2020Q4

REPORT INFORMATION
  Report Type: Spontaneous
  Country: US (occurrence: US)
  Receive Date: 20201202
  Receipt Date: 20201202
  Transmission Date: 20210114
  Serious: No
  Sender: FDA-Public Use
  Company Number: US-ROCHE-2678478

PATIENT
  Sex: Female
  Weight: 9.31 kg

DRUGS (4)
  1. POLY-VI-SOL WITH IRON [Concomitant]
     Active Substance: IRON\VITAMINS
  2. ALBUTEROL SULFATE. [Concomitant]
     Active Substance: ALBUTEROL SULFATE
  3. EVRYSDI [Suspect]
     Active Substance: RISDIPLAM
     Indication: SPINAL MUSCULAR ATROPHY
     Route: 050
  4. LACTULOSE. [Concomitant]
     Active Substance: LACTULOSE

REACTIONS (3)
  - Constipation [Unknown]
  - Diarrhoea [Unknown]
  - Upper respiratory tract infection [Unknown]
